FAERS Safety Report 19044577 (Version 1)
Quarter: 2021Q1

REPORT INFORMATION
  Report Type: Spontaneous
  Country: US (occurrence: US)
  Receive Date: 20210322
  Receipt Date: 20210322
  Transmission Date: 20210420
  Serious: Yes (Other)
  Sender: FDA-Public Use
  Company Number: US-GLAXOSMITHKLINE-US2021AMR063152

PATIENT
  Sex: Female

DRUGS (1)
  1. FLUTICASONE PROPIONATE+SALMETEROL XINAFOATE [Suspect]
     Active Substance: FLUTICASONE PROPIONATE\SALMETEROL XINAFOATE
     Indication: PRODUCT USED FOR UNKNOWN INDICATION
     Dosage: UNK, 250/50 MCG, 60

REACTIONS (7)
  - Panic reaction [Unknown]
  - Feeling abnormal [Unknown]
  - Myocardial infarction [Unknown]
  - Stress [Unknown]
  - Chest pain [Unknown]
  - Anxiety [Unknown]
  - Asthma [Unknown]

NARRATIVE: CASE EVENT DATE: 202103
